FAERS Safety Report 8100999-6 (Version None)
Quarter: 2012Q1

REPORT INFORMATION
  Report Type: 
  Country: None (occurrence: None)
  Receive Date: 20120129
  Receipt Date: 20111121
  Transmission Date: 20120608
  Serious: No
  Sender: FDA-Public Use
  Company Number: US-ABBOTT-11P-163-0877177-00

PATIENT
  Age: 49 Year
  Sex: Female

DRUGS (2)
  1. HUMIRA [Suspect]
     Indication: RHEUMATOID ARTHRITIS
  2. UNKNOWN ANTICOAGULANT [Concomitant]
     Indication: PULMONARY EMBOLISM

REACTIONS (3)
  - PULMONARY EMBOLISM [None]
  - VASCULITIS [None]
  - RASH [None]
